FAERS Safety Report 6652956-4 (Version None)
Quarter: 2010Q1

REPORT INFORMATION
  Report Type: 
  Country: None (occurrence: None)
  Receive Date: 20100326
  Receipt Date: 20100315
  Transmission Date: 20100710
  Serious: Yes (Hospitalization, Other)
  Sender: FDA-Public Use
  Company Number: PHHY2010JP15978

PATIENT
  Age: 68 Year
  Sex: Male

DRUGS (5)
  1. CYCLOSPORINE [Suspect]
     Indication: APLASTIC ANAEMIA
     Dosage: 300 MG/DAY
  2. METHYLPREDNISOLONE [Suspect]
     Indication: APLASTIC ANAEMIA
     Dosage: 120 MG/DAY
  3. PREDNISONE TAB [Suspect]
     Indication: APLASTIC ANAEMIA
     Dosage: 60 MG/DAY
  4. PREDNISONE TAB [Suspect]
     Dosage: 30 MG/DAY
  5. PREDNISONE TAB [Suspect]
     Dosage: 12 MG/DAY

REACTIONS (10)
  - ANAESTHESIA [None]
  - BRAIN STEM INFARCTION [None]
  - CEREBRAL INFARCTION [None]
  - HEMIPARESIS [None]
  - HYPERSENSITIVITY [None]
  - KLEBSIELLA INFECTION [None]
  - KLEBSIELLA SEPSIS [None]
  - PLATELET TRANSFUSION [None]
  - PYREXIA [None]
  - THALAMIC INFARCTION [None]
